FAERS Safety Report 15465130 (Version 1)
Quarter: 2018Q4

REPORT INFORMATION
  Report Type: Report from Study
  Country: US (occurrence: US)
  Receive Date: 20181004
  Receipt Date: 20181004
  Transmission Date: 20190204
  Serious: Yes (Other)
  Sender: FDA-Public Use
  Company Number: US-JAZZ-2018-US-008205

PATIENT

DRUGS (1)
  1. ERWINAZE [Suspect]
     Active Substance: ASPARAGINASE ERWINIA CHRYSANTHEMI
     Indication: ACUTE BIPHENOTYPIC LEUKAEMIA
     Dosage: 20000 IU/M2, COMBINATION OF IV/IM ROUTE
     Route: 042

REACTIONS (1)
  - Hypersensitivity [Recovered/Resolved]
